FAERS Safety Report 19779793 (Version 3)
Quarter: 2022Q2

REPORT INFORMATION
  Report Type: Spontaneous
  Country: US (occurrence: US)
  Receive Date: 20210902
  Receipt Date: 20220503
  Transmission Date: 20220720
  Serious: No
  Sender: FDA-Public Use
  Company Number: US-PFIZER INC-202100986743

PATIENT
  Age: 56 Year
  Sex: Female

DRUGS (3)
  1. CHANTIX [Suspect]
     Active Substance: VARENICLINE TARTRATE
     Indication: Smoking cessation therapy
     Dosage: UNK
     Dates: start: 2019
  2. CHANTIX [Suspect]
     Active Substance: VARENICLINE TARTRATE
     Dosage: 1 MG, 1X/DAY
     Route: 048
     Dates: start: 20181214, end: 20191213
  3. KLONOPIN [Concomitant]
     Active Substance: CLONAZEPAM
     Dosage: UP TO TWO PER DAY

REACTIONS (10)
  - Weight decreased [Unknown]
  - Memory impairment [Unknown]
  - Feeling abnormal [Unknown]
  - Back pain [Unknown]
  - Vomiting [Unknown]
  - Visual impairment [Unknown]
  - Gait disturbance [Unknown]
  - Agoraphobia [Unknown]
  - Abnormal behaviour [Unknown]
  - Nausea [Unknown]

NARRATIVE: CASE EVENT DATE: 20190101
